FAERS Safety Report 12193597 (Version 1)
Quarter: 2016Q1

REPORT INFORMATION
  Report Type: Spontaneous
  Country: FR (occurrence: FR)
  Receive Date: 20160320
  Receipt Date: 20160320
  Transmission Date: 20160526
  Serious: Yes (Other)
  Sender: FDA-Public Use
  Company Number: FR-HOSPIRA-3208002

PATIENT
  Age: 56 Year
  Sex: Female

DRUGS (21)
  1. IRINOTECAN MYLAN [Concomitant]
     Active Substance: IRINOTECAN
     Indication: PANCREATIC CARCINOMA RECURRENT
     Dosage: D1 C3 1CYCLE/15 D
     Route: 041
     Dates: start: 20151117, end: 20151117
  2. IRINOTECAN MYLAN [Concomitant]
     Active Substance: IRINOTECAN
     Indication: PANCREATIC CARCINOMA RECURRENT
     Dosage: D1 C4 1CYCLE/15 D
     Route: 041
     Dates: start: 20151201, end: 20151201
  3. PROGESTERONE. [Concomitant]
     Active Substance: PROGESTERONE
     Indication: PRODUCT USED FOR UNKNOWN INDICATION
     Route: 048
  4. ESOMEPRAZOLE [Concomitant]
     Active Substance: ESOMEPRAZOLE
     Indication: PRODUCT USED FOR UNKNOWN INDICATION
     Route: 048
  5. CREON [Concomitant]
     Active Substance: PANCRELIPASE AMYLASE\PANCRELIPASE LIPASE\PANCRELIPASE PROTEASE
     Indication: PANCREATIC INSUFFICIENCY
     Dosage: 75000 IU
     Route: 048
  6. CALCIUM LEVOFOLINATE [Concomitant]
     Active Substance: LEVOLEUCOVORIN CALCIUM
     Indication: PANCREATIC CARCINOMA RECURRENT
     Dosage: D1 C1, 1CYCLE/15 D
     Route: 041
     Dates: start: 20151013, end: 20151013
  7. CALCIUM LEVOFOLINATE [Concomitant]
     Active Substance: LEVOLEUCOVORIN CALCIUM
     Indication: PANCREATIC CARCINOMA RECURRENT
     Dosage: D1 C2 1CYCLE/15 D
     Route: 041
     Dates: start: 20151030, end: 20151030
  8. OXALIPLATIN HOSPIRA [Suspect]
     Active Substance: OXALIPLATIN
     Indication: PANCREATIC CARCINOMA RECURRENT
     Route: 041
     Dates: start: 20151117, end: 20151117
  9. ALPRAZOLAM. [Concomitant]
     Active Substance: ALPRAZOLAM
     Indication: PRODUCT USED FOR UNKNOWN INDICATION
     Route: 048
  10. IRINOTECAN MYLAN [Concomitant]
     Active Substance: IRINOTECAN
     Indication: PANCREATIC CARCINOMA RECURRENT
     Dosage: D1 C3 1CYCLE/15 D
     Route: 041
     Dates: start: 20151117, end: 20151117
  11. IRINOTECAN MYLAN [Concomitant]
     Active Substance: IRINOTECAN
     Indication: PANCREATIC CARCINOMA RECURRENT
     Dosage: D1 C4 1CYCLE/15 D
     Route: 041
     Dates: start: 20151201, end: 20151201
  12. FLUOROURACILE ACCORD [Concomitant]
     Active Substance: FLUOROURACIL
     Indication: PANCREATIC CARCINOMA RECURRENT
     Dosage: D1 C4
     Route: 041
     Dates: start: 20151201, end: 20151201
  13. GRANOCYTE [Concomitant]
     Active Substance: LENOGRASTIM
     Indication: PROPHYLAXIS
     Dosage: D5-D9 AFTER EACH COURSE
     Route: 058
     Dates: start: 20151017, end: 20160113
  14. OXALIPLATIN HOSPIRA [Suspect]
     Active Substance: OXALIPLATIN
     Indication: PANCREATIC CARCINOMA RECURRENT
     Route: 041
     Dates: start: 20151030, end: 20151030
  15. FLUOROURACILE ACCORD [Concomitant]
     Active Substance: FLUOROURACIL
     Indication: PANCREATIC CARCINOMA RECURRENT
     Dosage: D1 C1
     Route: 041
     Dates: start: 20151013, end: 20151013
  16. FLUOROURACILE ACCORD [Concomitant]
     Active Substance: FLUOROURACIL
     Indication: PANCREATIC CARCINOMA RECURRENT
     Dosage: D1 C2
     Route: 041
     Dates: start: 20151030, end: 20151030
  17. FLUOROURACILE ACCORD [Concomitant]
     Active Substance: FLUOROURACIL
     Indication: PANCREATIC CARCINOMA RECURRENT
     Dosage: D1 C3
     Route: 041
     Dates: start: 20151117, end: 20151117
  18. CALCIUM LEVOFOLINATE [Concomitant]
     Active Substance: LEVOLEUCOVORIN CALCIUM
     Indication: PANCREATIC CARCINOMA RECURRENT
     Dosage: D1 C3 1CYCLE/15 D
     Route: 041
     Dates: start: 20151117, end: 20151117
  19. CALCIUM LEVOFOLINATE [Concomitant]
     Active Substance: LEVOLEUCOVORIN CALCIUM
     Indication: PANCREATIC CARCINOMA RECURRENT
     Dosage: D1 C4 1CYCLE/15 D
     Route: 041
     Dates: start: 20151201, end: 20151201
  20. PARACETAMOL [Concomitant]
     Active Substance: ACETAMINOPHEN
     Indication: PRODUCT USED FOR UNKNOWN INDICATION
     Dosage: UPON REQUEST
     Route: 048
  21. OXALIPLATIN HOSPIRA [Suspect]
     Active Substance: OXALIPLATIN
     Indication: PANCREATIC CARCINOMA RECURRENT
     Route: 041
     Dates: start: 20151013, end: 20151013

REACTIONS (8)
  - Renal failure [Recovering/Resolving]
  - Diarrhoea [Unknown]
  - Abdominal pain [Unknown]
  - Hypoproteinaemia [Recovering/Resolving]
  - Hypoalbuminaemia [Recovering/Resolving]
  - Nausea [Unknown]
  - Dysuria [Unknown]
  - Asthenia [Unknown]

NARRATIVE: CASE EVENT DATE: 20151215
